FAERS Safety Report 4380390-9 (Version None)
Quarter: 2004Q2

REPORT INFORMATION
  Report Type: 
  Country: None (occurrence: None)
  Receive Date: 20040618
  Receipt Date: 20040611
  Transmission Date: 20050107
  Serious: Yes (Hospitalization)
  Sender: FDA-Public Use
  Company Number: US-BRISTOL-MYERS SQUIBB COMPANY-12612529

PATIENT
  Age: 80 Year
  Sex: Male
  Weight: 71 kg

DRUGS (12)
  1. ERBITUX [Suspect]
     Indication: COLON CANCER METASTATIC
     Route: 042
     Dates: start: 20040318, end: 20040318
  2. BENADRYL [Concomitant]
     Indication: PREMEDICATION
     Route: 042
     Dates: start: 20040318, end: 20040318
  3. DECADRON [Concomitant]
     Indication: PREMEDICATION
     Route: 048
     Dates: start: 20040318, end: 20040318
  4. KYTRIL [Concomitant]
     Indication: PREMEDICATION
     Route: 048
     Dates: start: 20040318, end: 20040318
  5. IRINOTECAN [Concomitant]
     Dates: start: 20040318, end: 20040318
  6. ARICEPT [Concomitant]
  7. COUMADIN [Concomitant]
  8. DETROL [Concomitant]
  9. IMODIUM [Concomitant]
  10. PERSANTIN INJ [Concomitant]
  11. TAXOL [Concomitant]
  12. ZANAFLEX [Concomitant]

REACTIONS (3)
  - ATRIAL FIBRILLATION [None]
  - CARDIAC FAILURE CONGESTIVE [None]
  - PNEUMONIA [None]
